FAERS Safety Report 6793940-X (Version None)
Quarter: 2010Q2

REPORT INFORMATION
  Report Type: 
  Country: None (occurrence: None)
  Receive Date: 20100624
  Receipt Date: 20090609
  Transmission Date: 20101027
  Serious: Yes (Other)
  Sender: FDA-Public Use
  Company Number: JP-PFIZER INC-2009219163

PATIENT
  Age: 87 Year
  Sex: Female

DRUGS (2)
  1. UNASYN [Suspect]
     Indication: CYSTITIS BACTERIAL
     Dosage: UNK
     Route: 042
     Dates: start: 20090521, end: 20090523
  2. WARFARIN [Concomitant]

REACTIONS (1)
  - ENTEROCOLITIS HAEMORRHAGIC [None]
